FAERS Safety Report 17440565 (Version 1)
Quarter: 2020Q1

REPORT INFORMATION
  Report Type: Spontaneous
  Country: FR (occurrence: FR)
  Receive Date: 20200220
  Receipt Date: 20200220
  Transmission Date: 20200409
  Serious: Yes (Hospitalization)
  Sender: FDA-Public Use
  Company Number: FR-ASTRAZENECA-2020SE22485

PATIENT
  Age: 35 Year
  Sex: Female

DRUGS (6)
  1. PROPRANOLOL [Concomitant]
     Active Substance: PROPRANOLOL HYDROCHLORIDE
     Indication: PRODUCT USED FOR UNKNOWN INDICATION
     Route: 048
     Dates: end: 20191224
  2. STRESAM [Concomitant]
     Active Substance: ETIFOXINE
     Indication: PRODUCT USED FOR UNKNOWN INDICATION
     Route: 048
     Dates: end: 20191224
  3. KLIPAL CODEINE [Concomitant]
     Active Substance: ACETAMINOPHEN\CODEINE PHOSPHATE
     Indication: PRODUCT USED FOR UNKNOWN INDICATION
     Route: 048
  4. MIANSERINE [Concomitant]
     Active Substance: MIANSERIN HYDROCHLORIDE
     Indication: PRODUCT USED FOR UNKNOWN INDICATION
     Route: 048
     Dates: end: 20191224
  5. VALIUM [Concomitant]
     Active Substance: DIAZEPAM
     Indication: PRODUCT USED FOR UNKNOWN INDICATION
     Route: 048
     Dates: end: 20191224
  6. XEROQUEL LP [Suspect]
     Active Substance: QUETIAPINE FUMARATE
     Indication: ACCIDENTAL OVERDOSE
     Dosage: OVERDOSE, 2000MG, DAILY
     Route: 048
     Dates: start: 20191220, end: 20191224

REACTIONS (6)
  - Acute kidney injury [Recovered/Resolved]
  - Overdose [Recovered/Resolved]
  - Incorrect dose administered [Recovered/Resolved]
  - Product dispensing error [Recovered/Resolved]
  - Somnolence [Recovered/Resolved]
  - Hepatocellular injury [Recovered/Resolved]

NARRATIVE: CASE EVENT DATE: 20191220
